FAERS Safety Report 6096972-2 (Version None)
Quarter: 2009Q1

REPORT INFORMATION
  Report Type: 
  Country: None (occurrence: None)
  Receive Date: 20090227
  Receipt Date: 20090217
  Transmission Date: 20090719
  Serious: Yes (Hospitalization, Disabling, Other)
  Sender: FDA-Public Use
  Company Number: FR-PFIZER INC-2009170583

PATIENT

DRUGS (11)
  1. DILTIAZEM HCL [Interacting]
     Dosage: 90 MG, 2X/DAY
     Route: 048
  2. ALDACTONE [Suspect]
     Dosage: 50 MG, 2X/DAY
     Route: 048
  3. DISCOTRINE [Interacting]
     Dosage: 10 MG, 1X/DAY
     Route: 048
  4. FUROSEMIDE [Interacting]
     Dosage: 10 MG, 2X/DAY
     Route: 048
  5. NICORANDIL [Interacting]
     Route: 048
  6. SIMVASTATIN [Concomitant]
     Dosage: UNK
     Route: 048
  7. DIAMICRON [Concomitant]
     Dosage: UNK
     Route: 048
  8. ZOLPIDEM [Concomitant]
  9. OMEPRAZOLE [Concomitant]
     Route: 048
  10. CORTANCYL [Concomitant]
     Dosage: UNK
     Route: 048
  11. KALEORID [Concomitant]
     Dosage: UNK
     Route: 048

REACTIONS (3)
  - DRUG INTERACTION [None]
  - FALL [None]
  - TIBIA FRACTURE [None]
